FAERS Safety Report 22223129 (Version 1)
Quarter: 2023Q2

REPORT INFORMATION
  Report Type: Other
  Country: CA (occurrence: CA)
  Receive Date: 20230418
  Receipt Date: 20230418
  Transmission Date: 20230721
  Serious: Yes (Hospitalization)
  Sender: FDA-Public Use
  Company Number: CA-PFIZER INC-202300157539

PATIENT
  Age: 13 Year
  Sex: Male

DRUGS (1)
  1. BACTERIOSTATIC SODIUM CHLORIDE [Suspect]
     Active Substance: SODIUM CHLORIDE
     Dosage: UNK

REACTIONS (4)
  - Hyperchloraemia [Unknown]
  - Low lung compliance [Unknown]
  - Metabolic acidosis [Unknown]
  - Respiratory acidosis [Unknown]
